FAERS Safety Report 23676850 (Version 1)
Quarter: 2024Q1

REPORT INFORMATION
  Report Type: Other
  Country: CA (occurrence: CA)
  Receive Date: 20240327
  Receipt Date: 20240327
  Transmission Date: 20240410
  Serious: Yes (Other)
  Sender: FDA-Public Use
  Company Number: CA-APOTEX-2024AP003846

PATIENT
  Age: 76 Year
  Sex: Female

DRUGS (1)
  1. ALBUTEROL [Suspect]
     Active Substance: ALBUTEROL
     Indication: Product used for unknown indication
     Dosage: UNK
     Route: 065

REACTIONS (8)
  - Increased bronchial secretion [Unknown]
  - Loss of personal independence in daily activities [Unknown]
  - Nocturnal dyspnoea [Unknown]
  - Productive cough [Unknown]
  - Pulmonary congestion [Unknown]
  - Sleep disorder due to a general medical condition [Unknown]
  - Asthenia [Unknown]
  - Cough [Unknown]
